FAERS Safety Report 6853915-9 (Version None)
Quarter: 2010Q3

REPORT INFORMATION
  Report Type: 
  Country: None (occurrence: None)
  Receive Date: 20100717
  Receipt Date: 20080130
  Transmission Date: 20110219
  Serious: Yes (Other)
  Sender: FDA-Public Use
  Company Number: US-PFIZER INC-2007106378

PATIENT
  Age: 52 Year
  Sex: Female
  Weight: 92.1 kg

DRUGS (17)
  1. CHANTIX [Suspect]
     Indication: EX-TOBACCO USER
     Route: 048
     Dates: start: 20071031, end: 20071119
  2. ADVAIR DISKUS 100/50 [Concomitant]
     Route: 055
  3. ALBUTEROL [Concomitant]
     Route: 055
  4. CYMBALTA [Concomitant]
     Route: 048
  5. DEPAKOTE [Concomitant]
     Route: 048
  6. PROPRANOLOL HYDROCHLORIDE [Concomitant]
     Route: 048
  7. OXYGEN [Concomitant]
  8. SEROQUEL [Concomitant]
     Route: 048
  9. MONTELUKAST SODIUM [Concomitant]
  10. SYMBICORT [Concomitant]
  11. SYNTHROID [Concomitant]
     Route: 048
  12. TOPAMAX [Concomitant]
     Route: 048
  13. TOPROL-XL [Concomitant]
  14. ALL OTHER THERAPEUTIC PRODUCTS [Concomitant]
     Route: 048
  15. VASOTEC [Concomitant]
  16. VYTORIN [Concomitant]
     Route: 048
  17. XANAX [Concomitant]
     Route: 048

REACTIONS (6)
  - AGITATION [None]
  - DEPRESSION [None]
  - DRUG ADMINISTRATION ERROR [None]
  - FEELING ABNORMAL [None]
  - NICOTINE DEPENDENCE [None]
  - SUICIDAL IDEATION [None]
